FAERS Safety Report 16667559 (Version 1)
Quarter: 2019Q3

REPORT INFORMATION
  Report Type: Spontaneous
  Country: US (occurrence: US)
  Receive Date: 20190805
  Receipt Date: 20190805
  Transmission Date: 20191004
  Serious: Yes (Other)
  Sender: FDA-Public Use
  Company Number: US-DRREDDYS-USA/USA/19/0112815

PATIENT
  Age: 118 Month
  Sex: Female

DRUGS (6)
  1. FLUCONAZOLE. [Suspect]
     Active Substance: FLUCONAZOLE
     Indication: ANTIFUNGAL TREATMENT
     Route: 065
  2. POSACONAZOLE [Interacting]
     Active Substance: POSACONAZOLE
     Indication: ANTIFUNGAL TREATMENT
     Route: 065
  3. FLUCONAZOLE. [Interacting]
     Active Substance: FLUCONAZOLE
     Indication: RESPIRATORY DISORDER
  4. FLUTICASONE PROPIONATE. [Interacting]
     Active Substance: FLUTICASONE PROPIONATE
     Indication: PROPHYLAXIS
     Dosage: CHRONIC INHALED STEROID FOR SEVERAL YEARS.
     Route: 055
  5. FLUTICASONE PROPIONATE. [Interacting]
     Active Substance: FLUTICASONE PROPIONATE
     Route: 055
  6. FLUCONAZOLE. [Interacting]
     Active Substance: FLUCONAZOLE
     Indication: MENINGITIS COCCIDIOIDES

REACTIONS (6)
  - Femur fracture [Unknown]
  - Bone density decreased [Unknown]
  - Growth failure [Recovered/Resolved]
  - Adrenal suppression [Recovered/Resolved]
  - Cushingoid [Recovered/Resolved]
  - Drug interaction [Unknown]
